FAERS Safety Report 8400959-1 (Version None)
Quarter: 2012Q2

REPORT INFORMATION
  Report Type: 
  Country: None (occurrence: None)
  Receive Date: 20120601
  Receipt Date: 20120522
  Transmission Date: 20120825
  Serious: Yes (Hospitalization)
  Sender: FDA-Public Use
  Company Number: US-BIOGENIDEC-2012BI018607

PATIENT
  Age: 52 Year
  Sex: Female

DRUGS (4)
  1. NEURONTIN [Concomitant]
     Indication: PAIN
  2. TYSABRI [Suspect]
     Indication: MULTIPLE SCLEROSIS
     Route: 042
     Dates: start: 20101212
  3. MIDRIN [Concomitant]
     Indication: HEADACHE
  4. PERCOCET [Concomitant]
     Indication: PAIN

REACTIONS (4)
  - BACK PAIN [None]
  - NECK PAIN [None]
  - HYPERTENSION [None]
  - VOMITING [None]
